FAERS Safety Report 21719719 (Version 1)
Quarter: 2022Q4

REPORT INFORMATION
  Report Type: Spontaneous
  Country: US (occurrence: US)
  Receive Date: 20221213
  Receipt Date: 20221213
  Transmission Date: 20230113
  Serious: No
  Sender: FDA-Public Use
  Company Number: US-BAUSCH-BL-2022-026579

PATIENT

DRUGS (1)
  1. ARAZLO [Suspect]
     Active Substance: TAZAROTENE
     Indication: Product used for unknown indication
     Route: 065

REACTIONS (2)
  - Skin exfoliation [Unknown]
  - Condition aggravated [Unknown]
